FAERS Safety Report 20892559 (Version 1)
Quarter: 2022Q2

REPORT INFORMATION
  Report Type: Spontaneous
  Country: US (occurrence: US)
  Receive Date: 20220531
  Receipt Date: 20220531
  Transmission Date: 20220721
  Serious: Yes (Other)
  Sender: FDA-Public Use
  Company Number: US-Accord-264825

PATIENT
  Age: 62 Year
  Sex: Female

DRUGS (13)
  1. BUPROPION HYDROCHLORIDE [Suspect]
     Active Substance: BUPROPION HYDROCHLORIDE
     Indication: Major depression
     Route: 065
  2. OXYBUTYNIN CHLORIDE [Suspect]
     Active Substance: OXYBUTYNIN CHLORIDE
     Indication: Persistent genital arousal disorder
     Route: 065
  3. SERTRALINE [Suspect]
     Active Substance: SERTRALINE HYDROCHLORIDE
     Indication: Major depression
     Route: 065
  4. FLUOXETINE [Suspect]
     Active Substance: FLUOXETINE HYDROCHLORIDE
     Indication: Major depression
     Route: 065
  5. CYCLOBENZAPRINE [Suspect]
     Active Substance: CYCLOBENZAPRINE
     Indication: Major depression
     Route: 065
  6. LIDOCAINE [Suspect]
     Active Substance: LIDOCAINE
     Indication: Persistent genital arousal disorder
     Route: 061
  7. ESTROGEN NOS [Suspect]
     Active Substance: ESTROGENS
     Indication: Persistent genital arousal disorder
     Route: 061
  8. PAROXETINE [Suspect]
     Active Substance: PAROXETINE
     Indication: Major depression
     Route: 065
  9. DULOXETINE [Suspect]
     Active Substance: DULOXETINE
     Indication: Major depression
     Route: 065
  10. MIRTAZAPINE [Suspect]
     Active Substance: MIRTAZAPINE
     Indication: Major depression
     Route: 065
  11. ZOLPIDEM [Suspect]
     Active Substance: ZOLPIDEM TARTRATE
     Indication: Major depression
     Route: 065
  12. SUVOREXANT [Suspect]
     Active Substance: SUVOREXANT
     Indication: Major depression
     Route: 065
  13. OLANZAPINE [Suspect]
     Active Substance: OLANZAPINE
     Indication: Major depression
     Route: 065

REACTIONS (3)
  - Drug ineffective [Unknown]
  - Drug intolerance [Unknown]
  - Off label use [Unknown]
